FAERS Safety Report 5225888-6 (Version None)
Quarter: 2007Q1

REPORT INFORMATION
  Report Type: 
  Country: None (occurrence: None)
  Receive Date: 20070130
  Receipt Date: 20070130
  Transmission Date: 20070707
  Serious: Yes (Death)
  Sender: FDA-Public Use
  Company Number: None

PATIENT
  Age: 52 Year
  Sex: Female
  Weight: 78.2 kg

DRUGS (6)
  1. SUTENT [Suspect]
     Indication: LEIOMYOSARCOMA METASTATIC
     Dosage: 50 MG DAILY FOR 28 DAYS PO
     Route: 048
     Dates: start: 20061205, end: 20061218
  2. OXYCODONE HCL [Concomitant]
  3. PROPOXYPHANE [Concomitant]
  4. PROTONIX [Concomitant]
  5. TANDEM F [Concomitant]
  6. DIETARY SUPPLEMENT [Concomitant]

REACTIONS (2)
  - LEUKOCYTOSIS [None]
  - METABOLIC ACIDOSIS [None]
